FAERS Safety Report 10183619 (Version 2)
Quarter: 2014Q2

REPORT INFORMATION
  Report Type: Spontaneous
  Country: US (occurrence: US)
  Receive Date: 20140520
  Receipt Date: 20140610
  Transmission Date: 20141212
  Serious: Yes (Death)
  Sender: FDA-Public Use
  Company Number: US-CELGENEUS-163-POMAL-14052302

PATIENT
  Age: 48 Year
  Sex: Female
  Weight: 73.55 kg

DRUGS (3)
  1. POMALYST [Suspect]
     Indication: PLASMA CELL MYELOMA
     Dosage: 4 MILLIGRAM
     Route: 048
     Dates: start: 20130502
  2. ALKERAN [Concomitant]
     Indication: PLASMA CELL MYELOMA
     Dosage: 14 MILLIGRAM
     Route: 048
     Dates: start: 20131227
  3. ZOFRAN [Concomitant]
     Indication: PLASMA CELL MYELOMA
     Dosage: 4 MILLIGRAM
     Route: 048
     Dates: start: 20131227

REACTIONS (1)
  - Death [Fatal]
